FAERS Safety Report 18100814 (Version 2)
Quarter: 2025Q3

REPORT INFORMATION
  Report Type: Spontaneous
  Country: US (occurrence: US)
  Receive Date: 20200731
  Receipt Date: 20250807
  Transmission Date: 20251020
  Serious: Yes (Disabling, Other)
  Sender: PURDUE
  Company Number: US-PURDUE-USA-2020-0160219

PATIENT
  Sex: Male

DRUGS (1)
  1. OXYCONTIN [Suspect]
     Active Substance: OXYCODONE HYDROCHLORIDE
     Indication: Pain
     Dosage: 80 MG, TID
     Route: 048
     Dates: start: 201109

REACTIONS (4)
  - Disability [Not Recovered/Not Resolved]
  - Cardiac disorder [Unknown]
  - Drug dependence [Unknown]
  - Emotional distress [Unknown]
